FAERS Safety Report 7099310-1 (Version None)
Quarter: 2010Q4

REPORT INFORMATION
  Report Type: 
  Country: None (occurrence: None)
  Receive Date: 20101112
  Receipt Date: 20101110
  Transmission Date: 20110411
  Serious: Yes (Death, Hospitalization)
  Sender: FDA-Public Use
  Company Number: PHEH2009US04401

PATIENT
  Sex: Male
  Weight: 72.562 kg

DRUGS (11)
  1. EXJADE [Suspect]
     Indication: HAEMOSIDEROSIS
     Dosage: 1375 MG, QD
     Route: 048
     Dates: start: 20090301, end: 20090422
  2. EXJADE [Suspect]
     Indication: IRON OVERLOAD
  3. ASPIRIN [Concomitant]
     Dosage: 325 MG, UNK
  4. CARVEDILOL [Concomitant]
     Dosage: 6.2 MG, BID
  5. DIGOXIN [Concomitant]
     Dosage: 0.125 MG, QOD
  6. FLOMAX [Concomitant]
     Dosage: 0.4 MG, QD
  7. HYDRALAZINE [Concomitant]
     Dosage: 25 MG, TID
  8. LEVOTHYROXINE [Concomitant]
     Dosage: 75 MG, UNK
  9. LASIX [Concomitant]
     Dosage: 40 MG, QD
  10. IMDUR [Concomitant]
     Dosage: 60 MG, QD
  11. DETROL [Concomitant]
     Dosage: 4 MG, QHS

REACTIONS (12)
  - BLOOD CREATININE INCREASED [None]
  - BLOOD UREA INCREASED [None]
  - CARDIAC FAILURE CONGESTIVE [None]
  - HYPOXIA [None]
  - LETHARGY [None]
  - MULTI-ORGAN FAILURE [None]
  - PNEUMONIA STAPHYLOCOCCAL [None]
  - PROTEINURIA [None]
  - PYREXIA [None]
  - RENAL FAILURE ACUTE [None]
  - RESPIRATORY FAILURE [None]
  - SEPSIS [None]
